FAERS Safety Report 9191085 (Version 1)
Quarter: 2013Q1

REPORT INFORMATION
  Report Type: Spontaneous
  Country: CA (occurrence: CA)
  Receive Date: 20130326
  Receipt Date: 20130326
  Transmission Date: 20140127
  Serious: Yes (Other)
  Sender: FDA-Public Use
  Company Number: CA-ROCHE-1206056

PATIENT
  Sex: Male

DRUGS (2)
  1. LUCENTIS [Suspect]
     Indication: AGE-RELATED MACULAR DEGENERATION
     Route: 050
     Dates: start: 2007
  2. LUCENTIS [Suspect]
     Route: 050
     Dates: start: 2013

REACTIONS (4)
  - Cardiovascular disorder [Not Recovered/Not Resolved]
  - Dry eye [Not Recovered/Not Resolved]
  - Obesity [Not Recovered/Not Resolved]
  - Visual acuity reduced [Not Recovered/Not Resolved]
